FAERS Safety Report 4304230-9 (Version None)
Quarter: 2004Q1

REPORT INFORMATION
  Report Type: 
  Country: None (occurrence: None)
  Receive Date: 20040225
  Receipt Date: 20030106
  Transmission Date: 20041129
  Serious: Yes (Disabling)
  Sender: FDA-Public Use
  Company Number: WAES 0301AUS00035

PATIENT
  Age: 71 Year
  Sex: Female

DRUGS (2)
  1. [COMPOSITION UNSPECIFIED] [Concomitant]
     Indication: HYPERTENSION
  2. ZOCOR [Suspect]
     Route: 048
     Dates: end: 20021201

REACTIONS (5)
  - MUSCLE CRAMP [None]
  - MYALGIA [None]
  - PAIN IN EXTREMITY [None]
  - RASH [None]
  - TREATMENT NONCOMPLIANCE [None]
